FAERS Safety Report 12244103 (Version 1)
Quarter: 2016Q2

REPORT INFORMATION
  Report Type: Spontaneous
  Country: US (occurrence: US)
  Receive Date: 20160406
  Receipt Date: 20160406
  Transmission Date: 20160815
  Serious: Yes (Hospitalization, Other)
  Sender: FDA-Public Use
  Company Number: US-AMGEN-USASP2016043110

PATIENT
  Age: 64 Year
  Sex: Female

DRUGS (1)
  1. ENBREL [Suspect]
     Active Substance: ETANERCEPT
     Indication: ARTHRITIS
     Dosage: UNK UNK, UNK
     Route: 065

REACTIONS (5)
  - Hysterectomy [Unknown]
  - Rash [Recovering/Resolving]
  - Off label use [Unknown]
  - Injection site reaction [Recovered/Resolved]
  - Ileostomy [Unknown]

NARRATIVE: CASE EVENT DATE: 2016
